FAERS Safety Report 5685038-9 (Version None)
Quarter: 2008Q1

REPORT INFORMATION
  Report Type: 
  Country: None (occurrence: None)
  Receive Date: 20080328
  Receipt Date: 20080324
  Transmission Date: 20080703
  Serious: Yes (Hospitalization, Other)
  Sender: FDA-Public Use
  Company Number: TR-ABBOTT-08P-161-0443657-00

PATIENT
  Sex: Female

DRUGS (1)
  1. KLACID I.V. [Suspect]
     Indication: DRUG USE FOR UNKNOWN INDICATION
     Route: 040

REACTIONS (2)
  - ANAPHYLACTIC REACTION [None]
  - INCORRECT DRUG ADMINISTRATION RATE [None]
